FAERS Safety Report 9449862 (Version 1)
Quarter: 2013Q3

REPORT INFORMATION
  Report Type: Report from Study
  Country: US (occurrence: US)
  Receive Date: 20130809
  Receipt Date: 20130809
  Transmission Date: 20140515
  Serious: Yes (Death, Life-Threatening, Hospitalization)
  Sender: FDA-Public Use
  Company Number: US-SANOFI-AVENTIS-2013SA078745

PATIENT
  Age: 68 Year
  Sex: Female
  Weight: 57.6 kg

DRUGS (15)
  1. DOCETAXEL [Suspect]
     Indication: LUNG NEOPLASM MALIGNANT
     Route: 042
     Dates: start: 20130610, end: 20130610
  2. INVESTIGATIONAL DRUG [Suspect]
     Indication: POSITRON EMISSION TOMOGRAM
     Route: 042
     Dates: start: 20130513, end: 20130513
  3. GABAPENTIN [Concomitant]
     Indication: NEUROPATHY PERIPHERAL
     Dates: start: 20130503
  4. HYDROMORPHONE [Concomitant]
     Indication: PAIN
     Dates: start: 20130503
  5. FENTANYL [Concomitant]
     Indication: PAIN
     Dates: start: 20130503
  6. MEGESTROL [Concomitant]
     Indication: DECREASED APPETITE
     Dates: start: 20130405
  7. LIDOCAINE [Concomitant]
     Indication: PAIN
     Dates: start: 20130315
  8. ACETAMINOPHEN [Concomitant]
     Indication: PAIN
  9. PRAVASTATIN [Concomitant]
     Indication: HYPERCHOLESTEROLAEMIA
  10. ONDANSETRON [Concomitant]
     Indication: NAUSEA
     Dates: start: 20130605
  11. PROCHLORPERAZINE [Concomitant]
     Indication: NAUSEA
     Dates: start: 20130605
  12. PREDNISONE [Concomitant]
     Indication: ALLERGY PROPHYLAXIS
     Dates: start: 20130130
  13. CALCIUM [Concomitant]
     Indication: SUPPLEMENTATION THERAPY
     Dates: start: 20130218
  14. LORAZEPAM [Concomitant]
     Indication: INSOMNIA
     Dates: start: 20121211
  15. NAPROXEN SODIUM [Concomitant]
     Indication: PAIN
     Dates: start: 2012

REACTIONS (3)
  - Acute lung injury [Fatal]
  - Systemic inflammatory response syndrome [Fatal]
  - Respiratory distress [Fatal]
